FAERS Safety Report 6535635-3 (Version None)
Quarter: 2010Q1

REPORT INFORMATION
  Report Type: 
  Country: None (occurrence: None)
  Receive Date: 20100113
  Receipt Date: 20091124
  Transmission Date: 20100710
  Serious: Yes (Hospitalization)
  Sender: FDA-Public Use
  Company Number: FR-BAYER-200940617GPV

PATIENT
  Age: 80 Year
  Sex: Female

DRUGS (12)
  1. GLUCOR [Suspect]
     Indication: TYPE 2 DIABETES MELLITUS
     Dosage: UNIT DOSE: 1 DF
     Route: 048
     Dates: end: 20090524
  2. BACLOFENE WINTHROP 10 MG [Suspect]
     Indication: HEMIPLEGIA
     Dosage: UNIT DOSE: 0.5 DF
     Route: 048
     Dates: end: 20090524
  3. DI-ANTALVIC [Suspect]
     Indication: PAIN
     Dosage: UNIT DOSE: 2 DF
     Route: 048
     Dates: end: 20090524
  4. TAHOR 40 MG [Suspect]
     Indication: HYPERCHOLESTEROLAEMIA
     Dosage: UNIT DOSE: 1 DF
     Route: 048
     Dates: start: 20080801, end: 20090524
  5. GLIMEPIRIDE TEVA 2 MG [Suspect]
     Indication: TYPE 2 DIABETES MELLITUS
     Dosage: UNIT DOSE: 1 DF
     Route: 048
     Dates: end: 20090524
  6. ESIDREX 25 MG [Suspect]
     Indication: HYPERTENSION
     Dosage: UNIT DOSE: 1 DF
     Route: 048
     Dates: start: 20080801, end: 20090526
  7. ATENOLOL TEVA [Concomitant]
     Indication: HYPERTENSION
     Dosage: 100 MG
     Route: 048
  8. AMLODIPINE EG [Concomitant]
     Indication: HYPERTENSION
     Dosage: 10 MG
     Route: 048
  9. KARDEGIC [Concomitant]
     Indication: MYOCARDIAL ISCHAEMIA
     Dosage: UNIT DOSE: 1 DF
     Route: 048
  10. NITROGLYCERIN [Concomitant]
     Indication: CARDIOVASCULAR EVENT PROPHYLAXIS
     Dosage: UNIT DOSE: 1 DF
     Route: 062
  11. OMEPRAZOLE [Concomitant]
     Indication: GASTROOESOPHAGEAL REFLUX DISEASE
     Dosage: UNIT DOSE: 10 MG
     Route: 048
     Dates: start: 20080801
  12. CACIT VITAMINE D3 [Concomitant]
     Indication: CALCIUM DEFICIENCY
     Dosage: UNIT DOSE: 1 DF
     Route: 048

REACTIONS (3)
  - CHOLESTASIS [None]
  - HEPATIC ENCEPHALOPATHY [None]
  - HYPERAMMONAEMIA [None]
